FAERS Safety Report 17445925 (Version 1)
Quarter: 2020Q1

REPORT INFORMATION
  Report Type: Report from Study
  Country: JP (occurrence: JP)
  Receive Date: 20200221
  Receipt Date: 20200221
  Transmission Date: 20200409
  Serious: Yes (Disabling)
  Sender: FDA-Public Use
  Company Number: JP-PFIZER INC-2020074091

PATIENT
  Age: 77 Year
  Sex: Male
  Weight: 60 kg

DRUGS (5)
  1. METHOTREXATE SODIUM. [Suspect]
     Active Substance: METHOTREXATE SODIUM
     Dosage: 6 MG, WEEKLY
     Dates: start: 20170703, end: 20180602
  2. ENBREL [Suspect]
     Active Substance: ETANERCEPT
     Dosage: UNK
     Dates: start: 20160830
  3. NO SUBJECT DRUG [Suspect]
     Active Substance: UNSPECIFIED INGREDIENT
     Dosage: NO DOSE GIVEN
  4. METHOTREXATE SODIUM. [Suspect]
     Active Substance: METHOTREXATE SODIUM
     Indication: RHEUMATOID ARTHRITIS
     Dosage: 8 MG, WEEKLY
     Dates: start: 20110418, end: 20170703
  5. METHOTREXATE SODIUM. [Suspect]
     Active Substance: METHOTREXATE SODIUM
     Dosage: 6 MG, WEEKLY
     Dates: start: 20190304

REACTIONS (1)
  - Laryngeal cancer [Recovered/Resolved with Sequelae]

NARRATIVE: CASE EVENT DATE: 20180515
